FAERS Safety Report 12304885 (Version 5)
Quarter: 2016Q3

REPORT INFORMATION
  Report Type: Spontaneous
  Country: US (occurrence: US)
  Receive Date: 20160426
  Receipt Date: 20160913
  Transmission Date: 20161109
  Serious: No
  Sender: FDA-Public Use
  Company Number: US-PFIZER INC-2016224317

PATIENT
  Age: 37 Year
  Sex: Female

DRUGS (2)
  1. LETROZOLE. [Suspect]
     Active Substance: LETROZOLE
     Indication: BREAST CANCER METASTATIC
     Dosage: UNK
     Dates: start: 20150808
  2. IBRANCE [Suspect]
     Active Substance: PALBOCICLIB
     Indication: BREAST CANCER METASTATIC
     Dosage: 125 MG, CYCLIC (DAYS 1-21 EVERY 28 DAYS)
     Route: 048
     Dates: start: 20150808

REACTIONS (11)
  - Constipation [Unknown]
  - Alopecia [Unknown]
  - Tumour marker increased [Recovering/Resolving]
  - Hot flush [Unknown]
  - Melanocytic naevus [Recovered/Resolved]
  - Platelet count decreased [Not Recovered/Not Resolved]
  - Fatigue [Unknown]
  - Faeces hard [Unknown]
  - Pyrexia [Recovered/Resolved]
  - White blood cell count decreased [Unknown]
  - Stomatitis [Not Recovered/Not Resolved]

NARRATIVE: CASE EVENT DATE: 20160708
